FAERS Safety Report 4564025-8 (Version None)
Quarter: 2005Q1

REPORT INFORMATION
  Report Type: 
  Country: None (occurrence: None)
  Receive Date: 20050128
  Receipt Date: 20040714
  Transmission Date: 20050727
  Serious: No
  Sender: FDA-Public Use
  Company Number: US-BRISTOL-MYERS SQUIBB COMPANY-12645131

PATIENT

DRUGS (3)
  1. AZACTAM [Suspect]
  2. CEPHALEXIN [Suspect]
  3. VANCOMYCIN [Concomitant]

REACTIONS (1)
  - HYPERSENSITIVITY [None]
